FAERS Safety Report 6115566-3 (Version None)
Quarter: 2009Q1

REPORT INFORMATION
  Report Type: 
  Country: None (occurrence: None)
  Receive Date: 20090313
  Receipt Date: 20090305
  Transmission Date: 20090719
  Serious: Yes (Hospitalization, Other)
  Sender: FDA-Public Use
  Company Number: PHHY2008MX14589

PATIENT
  Age: 85 Year
  Sex: Female

DRUGS (2)
  1. DIOVAN HCT [Suspect]
     Indication: HYPERTENSION
     Dosage: 1 TABLET (160/25 MG) PER DAY
     Route: 048
     Dates: end: 20081201
  2. RAMIPRIL [Interacting]
     Dosage: UNK
     Dates: end: 20081201

REACTIONS (5)
  - ARRHYTHMIA [None]
  - CONSTIPATION [None]
  - DRUG INTERACTION [None]
  - DYSURIA [None]
  - RENAL IMPAIRMENT [None]
